FAERS Safety Report 24156775 (Version 2)
Quarter: 2024Q3

REPORT INFORMATION
  Report Type: Spontaneous
  Country: US (occurrence: US)
  Receive Date: 20240731
  Receipt Date: 20240731
  Transmission Date: 20241016
  Serious: Yes (Hospitalization)
  Sender: ROCHE
  Company Number: US-ROCHE-10000033437

PATIENT
  Age: 10 Year
  Sex: Female

DRUGS (1)
  1. ACTEMRA [Suspect]
     Active Substance: TOCILIZUMAB
     Indication: Rheumatoid arthritis
     Route: 042
     Dates: start: 20240620

REACTIONS (3)
  - Drug reaction with eosinophilia and systemic symptoms [Unknown]
  - Serum sickness [Unknown]
  - Rash [Unknown]

NARRATIVE: CASE EVENT DATE: 20240620
